FAERS Safety Report 6882869-4 (Version None)
Quarter: 2010Q3

REPORT INFORMATION
  Report Type: 
  Country: None (occurrence: None)
  Receive Date: 20100702
  Receipt Date: 20091012
  Transmission Date: 20110219
  Serious: Yes (Hospitalization)
  Sender: FDA-Public Use
  Company Number: 2009230251

PATIENT
  Sex: Male
  Weight: 23.6 kg

DRUGS (3)
  1. ZOLOFT [Suspect]
     Indication: ANXIETY
     Dosage: 25 MG, 1X/DAY
     Dates: start: 20080101
  2. RISPERIDONE [Concomitant]
  3. LORATADINE [Concomitant]

REACTIONS (2)
  - ANXIETY [None]
  - URTICARIA [None]
